FAERS Safety Report 11594989 (Version 7)
Quarter: 2016Q2

REPORT INFORMATION
  Report Type: Report from Study
  Country: NL (occurrence: NL)
  Receive Date: 20151005
  Receipt Date: 20160517
  Transmission Date: 20160815
  Serious: Yes (Hospitalization)
  Sender: FDA-Public Use
  Company Number: NL-ABBVIE-15P-114-1456454-00

PATIENT
  Age: 71 Year
  Sex: Male

DRUGS (3)
  1. DUODOPA [Suspect]
     Active Substance: CARBIDOPA\LEVODOPA
     Indication: PARKINSON^S DISEASE
     Dosage: MD: 13.3, CD: 13.2, ED 4, ND: 5.4
     Route: 050
     Dates: start: 20080423
  2. DUODOPA [Suspect]
     Active Substance: CARBIDOPA\LEVODOPA
     Dosage: MD: 14.1, CD: 11, ED: 4, ND: 5.6
     Route: 050
  3. DUODOPA [Suspect]
     Active Substance: CARBIDOPA\LEVODOPA
     Dosage: MD: 14.6, CD: 13.4, ED: 5.6, ND: 5.9
     Route: 050

REACTIONS (35)
  - Musculoskeletal stiffness [Not Recovered/Not Resolved]
  - Bradykinesia [Not Recovered/Not Resolved]
  - Pain [Not Recovered/Not Resolved]
  - Gait disturbance [Unknown]
  - Device dislocation [Recovered/Resolved]
  - Hospitalisation [Recovered/Resolved]
  - Stoma site infection [Not Recovered/Not Resolved]
  - Stoma site pain [Not Recovered/Not Resolved]
  - Complication of device insertion [Unknown]
  - Hyperkinesia [Not Recovered/Not Resolved]
  - Muscular weakness [Not Recovered/Not Resolved]
  - On and off phenomenon [Not Recovered/Not Resolved]
  - Catheter site scab [Not Recovered/Not Resolved]
  - Drug ineffective [Not Recovered/Not Resolved]
  - Dyskinesia [Not Recovered/Not Resolved]
  - Off label use [Not Recovered/Not Resolved]
  - Polyneuropathy [Not Recovered/Not Resolved]
  - Fibroma [Not Recovered/Not Resolved]
  - Fatigue [Not Recovered/Not Resolved]
  - Sensory loss [Unknown]
  - Parkinson^s disease [Unknown]
  - Hypoaesthesia [Recovering/Resolving]
  - Gastrointestinal motility disorder [Recovered/Resolved]
  - Movement disorder [Recovering/Resolving]
  - Muscle rigidity [Not Recovered/Not Resolved]
  - Hospitalisation [Not Recovered/Not Resolved]
  - Urinary tract infection [Unknown]
  - Overdose [Unknown]
  - On and off phenomenon [Not Recovered/Not Resolved]
  - Infrequent bowel movements [Unknown]
  - Depression [Not Recovered/Not Resolved]
  - Bedridden [Recovering/Resolving]
  - Stoma site erythema [Not Recovered/Not Resolved]
  - Movement disorder [Not Recovered/Not Resolved]
  - Malaise [Not Recovered/Not Resolved]

NARRATIVE: CASE EVENT DATE: 20150928
